FAERS Safety Report 12335734 (Version 1)
Quarter: 2016Q2

REPORT INFORMATION
  Report Type: Spontaneous
  Country: FR (occurrence: FR)
  Receive Date: 20160505
  Receipt Date: 20160505
  Transmission Date: 20160815
  Serious: Yes (Hospitalization)
  Sender: FDA-Public Use
  Company Number: FR-ROCHE-1752550

PATIENT
  Age: 46 Year
  Sex: Male

DRUGS (13)
  1. SERESTA [Concomitant]
     Active Substance: OXAZEPAM
     Route: 065
  2. FOSCAVIR [Concomitant]
     Active Substance: FOSCARNET SODIUM
     Route: 065
     Dates: start: 20160406, end: 20160419
  3. CELLCEPT [Concomitant]
     Active Substance: MYCOPHENOLATE MOFETIL\MYCOPHENOLATE MOFETIL HYDROCHLORIDE
     Route: 065
  4. EUPRESSYL [Concomitant]
     Active Substance: URAPIDIL
     Route: 065
  5. LERCAN [Concomitant]
     Active Substance: LERCANIDIPINE
     Route: 065
  6. CYMEVAN [Concomitant]
     Active Substance: GANCICLOVIR
  7. PROPANOLOL [Concomitant]
     Active Substance: PROPRANOLOL HYDROCHLORIDE
     Route: 065
  8. ZOLPIDEM [Concomitant]
     Active Substance: ZOLPIDEM\ZOLPIDEM TARTRATE
     Route: 065
  9. INEXIUM [Concomitant]
     Active Substance: ESOMEPRAZOLE
     Route: 065
  10. CHOLURSO [Concomitant]
     Active Substance: URSODIOL
     Route: 065
  11. NEORAL [Concomitant]
     Active Substance: CYCLOSPORINE
     Route: 065
  12. ROVALCYTE [Suspect]
     Active Substance: VALGANCICLOVIR HYDROCHLORIDE
     Indication: CYTOMEGALOVIRUS INFECTION
     Route: 048
     Dates: start: 201602, end: 20160406
  13. ATARAX [Concomitant]
     Active Substance: HYDROXYZINE\HYDROXYZINE HYDROCHLORIDE
     Route: 065

REACTIONS (2)
  - Pancytopenia [Recovering/Resolving]
  - Agranulocytosis [Recovered/Resolved]

NARRATIVE: CASE EVENT DATE: 20160406
